FAERS Safety Report 16077736 (Version 1)
Quarter: 2019Q1

REPORT INFORMATION
  Report Type: Spontaneous
  Country: US (occurrence: US)
  Receive Date: 20190315
  Receipt Date: 20190315
  Transmission Date: 20190418
  Serious: Yes (Other)
  Sender: FDA-Public Use
  Company Number: US-REGENERON PHARMACEUTICALS, INC.-2019-22247

PATIENT

DRUGS (5)
  1. CIMZIA [Suspect]
     Active Substance: CERTOLIZUMAB PEGOL
     Indication: RHEUMATOID ARTHRITIS
  2. EYLEA [Suspect]
     Active Substance: AFLIBERCEPT
     Dosage: UNK, 3-5 WEEKS, LEFT EYE, LAST DOSE
     Route: 031
     Dates: start: 201902, end: 201902
  3. EYLEA [Suspect]
     Active Substance: AFLIBERCEPT
     Dosage: UNK,EVERY 4, THEN 6-8 AND 11-12 WEEKS, THEN 3-5 WEEKS, RIGHT EYE
     Route: 031
     Dates: start: 201708
  4. EYLEA [Suspect]
     Active Substance: AFLIBERCEPT
     Indication: NEOVASCULAR AGE-RELATED MACULAR DEGENERATION
     Dosage: UNK, EVERY 4, THEN 6-8 AND 11-12 WEEKS, THEN 3-5 WEEKS, LEFT EYE
     Route: 031
     Dates: start: 201704
  5. EYLEA [Suspect]
     Active Substance: AFLIBERCEPT
     Dosage: UNK, 3-5 WEEKS, RIGHT EYE, LAST DOSE
     Route: 031
     Dates: start: 20190307, end: 20190307

REACTIONS (6)
  - Disease progression [Unknown]
  - Eye haemorrhage [Unknown]
  - Cataract [Unknown]
  - Dry eye [Unknown]
  - Dry age-related macular degeneration [Unknown]
  - Visual impairment [Unknown]
